FAERS Safety Report 9579588 (Version 2)
Quarter: 2013Q4

REPORT INFORMATION
  Report Type: Spontaneous
  Country: US (occurrence: US)
  Receive Date: 20131002
  Receipt Date: 20131002
  Transmission Date: 20140711
  Serious: Yes (Hospitalization, Other)
  Sender: FDA-Public Use
  Company Number: US-AMGEN-USASP2013041102

PATIENT
  Age: 63 Year
  Sex: Female

DRUGS (3)
  1. ENBREL [Suspect]
     Indication: RHEUMATOID ARTHRITIS
     Dosage: 50 MG, QWK
     Route: 065
     Dates: start: 19981101
  2. ENBREL [Suspect]
     Dosage: UNK
     Route: 065
  3. METHOTREXATE [Concomitant]
     Dosage: 5 (2.5) MG TABS WEEKLY
     Dates: start: 1992

REACTIONS (13)
  - Spinal disorder [Recovered/Resolved]
  - Fall [Recovered/Resolved]
  - Spinal fracture [Unknown]
  - Intervertebral disc protrusion [Unknown]
  - Joint destruction [Recovered/Resolved]
  - Pneumonia [Recovered/Resolved]
  - Bronchitis [Recovered/Resolved]
  - Pain [Not Recovered/Not Resolved]
  - Thermal burn [Recovered/Resolved]
  - Injury [Recovered/Resolved]
  - Pain in extremity [Recovered/Resolved]
  - Neurological symptom [Recovered/Resolved]
  - Nervous system disorder [Recovered/Resolved]
